FAERS Safety Report 4962718-1 (Version None)
Quarter: 2006Q2

REPORT INFORMATION
  Report Type: 
  Country: None (occurrence: None)
  Receive Date: 20060404
  Receipt Date: 20060209
  Transmission Date: 20061013
  Serious: Yes (Other)
  Sender: FDA-Public Use
  Company Number: US-MERCK-0602USA02551

PATIENT
  Age: 42 Year
  Sex: Male
  Weight: 113 kg

DRUGS (5)
  1. VIOXX [Suspect]
     Indication: ARTHRITIS
     Route: 048
     Dates: start: 20021001, end: 20040901
  2. ALEVE [Concomitant]
     Route: 065
  3. ADVIL [Concomitant]
     Route: 065
  4. ACTOS [Concomitant]
     Route: 065
  5. GLUCOPHAGE [Concomitant]
     Route: 065

REACTIONS (3)
  - CEREBROVASCULAR ACCIDENT [None]
  - DEPRESSION [None]
  - PRESCRIBED OVERDOSE [None]
